FAERS Safety Report 4282635-2 (Version None)
Quarter: 2004Q1

REPORT INFORMATION
  Report Type: 
  Country: None (occurrence: None)
  Receive Date: 20040130
  Receipt Date: 20030106
  Transmission Date: 20041129
  Serious: No
  Sender: FDA-Public Use
  Company Number: US-BRISTOL-MYERS SQUIBB COMPANY-12151650

PATIENT
  Sex: Female

DRUGS (1)
  1. SERZONE [Suspect]
     Dosage: BEEN ON SERZONE FOR ^2-3 YEARS^
     Route: 048

REACTIONS (2)
  - CONSTIPATION [None]
  - DIZZINESS [None]
